FAERS Safety Report 9007424 (Version 2)
Quarter: 2014Q3

REPORT INFORMATION
  Report Type: Report from Study
  Country: US (occurrence: US)
  Receive Date: 20130110
  Receipt Date: 20140815
  Transmission Date: 20150326
  Serious: Yes (Hospitalization)
  Sender: FDA-Public Use
  Company Number: US-BAXTER-2013BAX000390

PATIENT
  Age: 63 Year

DRUGS (4)
  1. DEXAMETHASONE. [Suspect]
     Active Substance: DEXAMETHASONE
     Indication: PLASMA CELL MYELOMA
     Dosage: DAYS 1,2,4,5,8,9,11,12
     Route: 048
     Dates: start: 20110627, end: 20110718
  2. CYTOXAN [Suspect]
     Active Substance: CYCLOPHOSPHAMIDE
     Indication: PLASMA CELL MYELOMA
     Dosage: DAYS 1,8,15,22
     Route: 048
     Dates: start: 20110627, end: 20110718
  3. BORTEZOMIB [Suspect]
     Active Substance: BORTEZOMIB
     Indication: PLASMA CELL MYELOMA
     Dosage: DAYS 1,4,8 AND 11
     Route: 042
     Dates: start: 20110627, end: 20110718
  4. ZOLEDRONIC ACID [Suspect]
     Active Substance: ZOLEDRONIC ACID
     Indication: PLASMA CELL MYELOMA
     Dosage: 4 CYCLES
     Route: 042
     Dates: start: 20110401, end: 20110627

REACTIONS (3)
  - Dehydration [Unknown]
  - Serratia sepsis [Unknown]
  - Hypotension [Unknown]

NARRATIVE: CASE EVENT DATE: 20110928
